FAERS Safety Report 7816655-5 (Version None)
Quarter: 2011Q4

REPORT INFORMATION
  Report Type: 
  Country: None (occurrence: None)
  Receive Date: 20111017
  Receipt Date: 20111005
  Transmission Date: 20120403
  Serious: Yes (Other)
  Sender: FDA-Public Use
  Company Number: JP-UCBSA-032510

PATIENT
  Age: 27 Year
  Sex: Female

DRUGS (5)
  1. PHENYTOIN SODIUM CAP [Suspect]
     Dosage: TOTAL DAILY DOSE:150 MG
  2. CLONAZEPAM [Concomitant]
     Route: 048
  3. KEPPRA [Suspect]
     Indication: EPILEPSY
     Route: 048
     Dates: start: 20101101
  4. VALPROATE SODIUM [Concomitant]
     Route: 048
  5. PHENYTOIN SODIUM CAP [Suspect]
     Dosage: DOSAGE GRADUALLY BEING DECREASED

REACTIONS (1)
  - GINGIVAL HYPERPLASIA [None]
